FAERS Safety Report 4736267-X (Version None)
Quarter: 2005Q3

REPORT INFORMATION
  Report Type: 
  Country: None (occurrence: None)
  Receive Date: 20050802
  Receipt Date: 20050722
  Transmission Date: 20060218
  Serious: Yes (Other)
  Sender: FDA-Public Use
  Company Number: 2005105339

PATIENT
  Age: 25 Year
  Sex: Male

DRUGS (2)
  1. VFEND [Suspect]
     Indication: PNEUMONIA PRIMARY ATYPICAL
     Dosage: 400 MG (200 MG, 2 IN 1 D), ORAL
     Route: 048
  2. MERONEM (MEROPENEM) [Concomitant]

REACTIONS (3)
  - HEMIPARESIS [None]
  - SPEECH DISORDER [None]
  - VISUAL DISTURBANCE [None]
